FAERS Safety Report 7006730-X (Version None)
Quarter: 2010Q3

REPORT INFORMATION
  Report Type: 
  Country: None (occurrence: None)
  Receive Date: 20100922
  Receipt Date: 20100913
  Transmission Date: 20110219
  Serious: Yes (Hospitalization)
  Sender: FDA-Public Use
  Company Number: DE-BIOGENIDEC-2010BI031578

PATIENT
  Age: 42 Year
  Sex: Male
  Weight: 92 kg

DRUGS (5)
  1. AVONEX [Suspect]
     Indication: MULTIPLE SCLEROSIS
     Route: 030
     Dates: start: 20030901
  2. SYMBICORT [Concomitant]
     Indication: CHRONIC RESPIRATORY DISEASE
     Route: 055
     Dates: start: 20090101
  3. NASIC F?R KINDER [Concomitant]
     Indication: CHRONIC RESPIRATORY DISEASE
     Route: 055
  4. ACC LONG [Concomitant]
     Indication: CHRONIC RESPIRATORY DISEASE
  5. NOVAMINSULFON [Concomitant]
     Indication: BACK PAIN
     Dates: start: 20030101

REACTIONS (1)
  - LOSS OF CONSCIOUSNESS [None]
